APPROVED DRUG PRODUCT: GABAPENTIN
Active Ingredient: GABAPENTIN
Strength: 600MG
Dosage Form/Route: TABLET;ORAL
Application: A203244 | Product #002 | TE Code: AB1
Applicant: STRIDES PHARMA GLOBAL PTE LTD
Approved: Jul 12, 2013 | RLD: No | RS: No | Type: RX